FAERS Safety Report 6436220-4 (Version None)
Quarter: 2009Q4

REPORT INFORMATION
  Report Type: 
  Country: None (occurrence: None)
  Receive Date: 20091110
  Receipt Date: 20091110
  Transmission Date: 20100525
  Serious: Yes (Hospitalization)
  Sender: FDA-Public Use
  Company Number: None

PATIENT
  Sex: Male
  Weight: 127 kg

DRUGS (2)
  1. LPAM (MELPHALAN) [Suspect]
     Indication: AMYLOIDOSIS
     Dosage: 14 MG DAILY - DAYS 1-7
     Dates: start: 20091023
  2. DEXAMETHASONE [Suspect]
     Indication: AMYLOIDOSIS
     Dosage: 40 MG DAILY DAYS 1-4 AND 22-25
     Dates: start: 20091023

REACTIONS (2)
  - CELLULITIS [None]
  - PULMONARY EMBOLISM [None]
